FAERS Safety Report 6769769-5 (Version None)
Quarter: 2010Q2

REPORT INFORMATION
  Report Type: 
  Country: None (occurrence: None)
  Receive Date: 20100615
  Receipt Date: 20100609
  Transmission Date: 20101027
  Serious: Yes (Hospitalization)
  Sender: FDA-Public Use
  Company Number: IT-ROCHE-708290

PATIENT
  Sex: Male

DRUGS (1)
  1. LARIAM [Suspect]
     Dosage: ROUTE: OS  FREQUENCY: WEEKLY
     Route: 048
     Dates: start: 20091106, end: 20100307

REACTIONS (2)
  - ANAEMIA [None]
  - PLASMODIUM FALCIPARUM INFECTION [None]
